FAERS Safety Report 8437792-0 (Version None)
Quarter: 2012Q2

REPORT INFORMATION
  Report Type: 
  Country: None (occurrence: None)
  Receive Date: 20120614
  Receipt Date: 20120514
  Transmission Date: 20120825
  Serious: No
  Sender: FDA-Public Use
  Company Number: US-AMGEN-USASP2012030376

PATIENT
  Age: 65 Year
  Sex: Female

DRUGS (6)
  1. OMEPRAZOLE [Concomitant]
  2. PROLIA [Suspect]
     Indication: OSTEOPOROSIS POSTMENOPAUSAL
     Dosage: UNK UNK, Q6MO
     Dates: start: 20110901
  3. LORAZEPAM [Concomitant]
  4. CALCIUM [Concomitant]
  5. SYNTHROID [Concomitant]
  6. VITAMIN D [Concomitant]

REACTIONS (3)
  - SKIN REACTION [None]
  - LICHEN PLANUS [None]
  - GINGIVAL PAIN [None]
